FAERS Safety Report 4514333-1 (Version None)
Quarter: 2004Q4

REPORT INFORMATION
  Report Type: 
  Country: None (occurrence: None)
  Receive Date: 20041130
  Receipt Date: 20040720
  Transmission Date: 20050328
  Serious: Yes (Life-Threatening)
  Sender: FDA-Public Use
  Company Number: US-MERCK-0407USA01713

PATIENT
  Age: 71 Year
  Sex: Male

DRUGS (2)
  1. SINGULAIR [Suspect]
     Route: 048
  2. WARFARIN [Concomitant]
     Route: 065

REACTIONS (4)
  - DRUG INEFFECTIVE [None]
  - EPISTAXIS [None]
  - HYPERTENSION [None]
  - SCAB [None]
